FAERS Safety Report 20328012 (Version 1)
Quarter: 2022Q1

REPORT INFORMATION
  Report Type: Spontaneous
  Country: CN (occurrence: None)
  Receive Date: 20220112
  Receipt Date: 20220112
  Transmission Date: 20220423
  Serious: Yes (Hospitalization)
  Sender: FDA-Public Use
  Company Number: CN-Merck Healthcare KGaA-9291612

PATIENT
  Age: 28 Year
  Sex: Female
  Weight: 64 kg

DRUGS (7)
  1. GONAL-F [Suspect]
     Active Substance: FOLLITROPIN
     Indication: In vitro fertilisation
     Route: 058
     Dates: start: 20211218, end: 20211223
  2. MENOTROPINS [Suspect]
     Active Substance: MENOTROPINS
     Indication: In vitro fertilisation
     Route: 030
     Dates: start: 20211218, end: 20211223
  3. HYDROXYETHYL STARCH AND SODIUM CHLORIDE [Concomitant]
     Indication: Product used for unknown indication
     Dosage: 500ML IVGTT
  4. DYDROGESTERONE [Concomitant]
     Active Substance: DYDROGESTERONE
     Indication: Product used for unknown indication
  5. LETROZOLE [Concomitant]
     Active Substance: LETROZOLE
     Indication: Blood oestrogen increased
  6. GANIRELIX ACETATE [Concomitant]
     Active Substance: GANIRELIX ACETATE
     Indication: Antioestrogen therapy
     Route: 058
  7. INVERT SUGAR AND ELECTROLYTES [Concomitant]
     Indication: Dehydration
     Dosage: IVGTT

REACTIONS (1)
  - Ovarian hyperstimulation syndrome [Recovering/Resolving]

NARRATIVE: CASE EVENT DATE: 20211230
